FAERS Safety Report 23848093 (Version 2)
Quarter: 2024Q3

REPORT INFORMATION
  Report Type: Spontaneous
  Country: US (occurrence: US)
  Receive Date: 20240513
  Receipt Date: 20240724
  Transmission Date: 20241016
  Serious: Yes (Disabling)
  Sender: MYLAN
  Company Number: US-MYLANLABS-2024M1042043

PATIENT
  Age: 40 Year
  Sex: Female
  Weight: 65.77 kg

DRUGS (3)
  1. ZOLOFT [Suspect]
     Active Substance: SERTRALINE HYDROCHLORIDE
     Indication: Perinatal depression
     Dosage: 150 MILLIGRAM, QD (HS, NIGHTLY)
     Route: 065
     Dates: start: 20190201
  2. ZOLOFT [Suspect]
     Active Substance: SERTRALINE HYDROCHLORIDE
     Dosage: 50 MILLIGRAM
     Route: 065
  3. ADDERALL [Concomitant]
     Active Substance: AMPHETAMINE ASPARTATE\AMPHETAMINE SULFATE\DEXTROAMPHETAMINE SACCHARATE\DEXTROAMPHETAMINE SULFATE
     Dosage: UNK
     Route: 065
     Dates: start: 2021

REACTIONS (1)
  - Apathy [Recovering/Resolving]

NARRATIVE: CASE EVENT DATE: 20190801
